FAERS Safety Report 10191822 (Version 1)
Quarter: 2014Q2

REPORT INFORMATION
  Report Type: Spontaneous
  Country: US (occurrence: US)
  Receive Date: 20140523
  Receipt Date: 20140523
  Transmission Date: 20141212
  Serious: No
  Sender: FDA-Public Use
  Company Number: US-TEVA-483378USA

PATIENT
  Sex: Female
  Weight: 57.66 kg

DRUGS (2)
  1. ACTIQ [Suspect]
     Indication: BREAKTHROUGH PAIN
     Dosage: ^6^
  2. HOMATROPINE [Concomitant]
     Indication: HYPOTHALAMO-PITUITARY DISORDER

REACTIONS (10)
  - Dental caries [Recovered/Resolved]
  - Weight decreased [Not Recovered/Not Resolved]
  - Vomiting [Unknown]
  - Vomiting projectile [Not Recovered/Not Resolved]
  - Pain [Not Recovered/Not Resolved]
  - Screaming [Not Recovered/Not Resolved]
  - Retching [Not Recovered/Not Resolved]
  - Hospice care [Not Recovered/Not Resolved]
  - Eating disorder [Unknown]
  - Tooth erosion [Unknown]
